FAERS Safety Report 8586032-0 (Version None)
Quarter: 2012Q3

REPORT INFORMATION
  Report Type: 
  Country: None (occurrence: None)
  Receive Date: 20120810
  Receipt Date: 20120731
  Transmission Date: 20120928
  Serious: Yes (Hospitalization, Other)
  Sender: FDA-Public Use
  Company Number: BR-ROCHE-1062362

PATIENT
  Sex: Female

DRUGS (16)
  1. XOLAIR [Suspect]
     Indication: ASTHMA
     Route: 058
  2. PREDNISONE TAB [Concomitant]
     Route: 065
  3. CAMPHOR/METHYL SALICYLATE [Concomitant]
     Route: 065
  4. CALCIUM CARBONATE [Concomitant]
     Route: 065
  5. FORTALIS [Concomitant]
  6. METFORMIN HYDROCHLORIDE [Concomitant]
     Route: 065
  7. SIMVASTATIN [Concomitant]
     Route: 065
  8. DAXAS [Concomitant]
  9. ENALAPRIL MALEATE [Concomitant]
     Route: 065
  10. BAMIFIX [Concomitant]
     Route: 065
  11. FLUOXETINE HCL [Concomitant]
     Route: 065
  12. INSULIN [Concomitant]
     Route: 065
  13. BUDESONIDE [Concomitant]
     Route: 065
  14. ROFLUMILAST [Concomitant]
     Route: 065
  15. XOLAIR [Suspect]
     Route: 058
     Dates: start: 20111201
  16. BUDESONIDE [Concomitant]
     Route: 065

REACTIONS (7)
  - ASTHMA [None]
  - DYSPNOEA [None]
  - MALAISE [None]
  - WHEEZING [None]
  - BLOOD PRESSURE DECREASED [None]
  - COUGH [None]
  - PNEUMONIA [None]
